FAERS Safety Report 9386604 (Version 1)
Quarter: 2013Q3

REPORT INFORMATION
  Report Type: Report from Study
  Country: DE (occurrence: DE)
  Receive Date: 20130708
  Receipt Date: 20130708
  Transmission Date: 20140515
  Serious: Yes (Death, Hospitalization)
  Sender: FDA-Public Use
  Company Number: DE-BRISTOL-MYERS SQUIBB COMPANY-19017490

PATIENT
  Age: 75 Year
  Sex: Female

DRUGS (7)
  1. PACLITAXEL [Suspect]
     Indication: BREAST CANCER
     Dosage: INTERRUPTED ON 10JUN13:85DAYS
     Route: 042
     Dates: start: 20130318, end: 20130614
  2. TRASTUZUMAB [Suspect]
     Indication: BREAST CANCER
     Dosage: LAST DOSE ON 29APR13
     Route: 042
     Dates: start: 20130318, end: 20130614
  3. PERTUZUMAB [Suspect]
     Indication: BREAST CANCER
     Dosage: LAST DOSE ON 29APR13
     Route: 042
     Dates: start: 20130318, end: 20130614
  4. LOSARTAN [Concomitant]
  5. MINOXIDIL [Concomitant]
  6. NEBIVOLOL [Concomitant]
  7. METROCREAM [Concomitant]

REACTIONS (4)
  - Cardiac failure [Fatal]
  - General physical health deterioration [Fatal]
  - Anaemia [Unknown]
  - Mucosal inflammation [Unknown]
